FAERS Safety Report 14264501 (Version 1)
Quarter: 2017Q4

REPORT INFORMATION
  Report Type: Spontaneous
  Country: US (occurrence: US)
  Receive Date: 20171208
  Receipt Date: 20171208
  Transmission Date: 20180321
  Serious: No
  Sender: FDA-Public Use
  Company Number: US-JAZZ-2017-US-012065

PATIENT
  Age: 45 Year
  Sex: Female

DRUGS (3)
  1. XYREM [Suspect]
     Active Substance: SODIUM OXYBATE
     Dosage: 3G, BID
     Route: 048
     Dates: start: 20170919, end: 201710
  2. XYREM [Suspect]
     Active Substance: SODIUM OXYBATE
     Indication: NARCOLEPSY
     Dosage: 2.25G, BID
     Route: 048
     Dates: start: 20170912, end: 2017
  3. XYREM [Suspect]
     Active Substance: SODIUM OXYBATE
     Dosage: 4.5 G, BID
     Route: 048
     Dates: start: 20171001

REACTIONS (11)
  - Back pain [Unknown]
  - Gastroenteritis viral [Unknown]
  - Restlessness [Not Recovered/Not Resolved]
  - Condition aggravated [Unknown]
  - Fatigue [Unknown]
  - Dysphagia [Unknown]
  - Muscle tightness [Unknown]
  - Feeling abnormal [Unknown]
  - Muscle twitching [Unknown]
  - Muscle spasms [Unknown]
  - Somnolence [Not Recovered/Not Resolved]

NARRATIVE: CASE EVENT DATE: 201709
